FAERS Safety Report 6767637-6 (Version None)
Quarter: 2010Q2

REPORT INFORMATION
  Report Type: 
  Country: None (occurrence: None)
  Receive Date: 20100614
  Receipt Date: 20100607
  Transmission Date: 20101027
  Serious: Yes (Hospitalization, Disabling)
  Sender: FDA-Public Use
  Company Number: CA-ASTRAZENECA-2010SE26550

PATIENT
  Age: 61 Year
  Sex: Male
  Weight: 110.7 kg

DRUGS (8)
  1. CRESTOR [Suspect]
     Route: 048
  2. ASPIRIN [Concomitant]
     Route: 048
  3. DILAUDID [Concomitant]
     Route: 065
  4. FISH OIL [Concomitant]
     Route: 065
  5. GLUCOSAMINE SULFATE [Concomitant]
     Route: 065
  6. HCTZ [Concomitant]
     Route: 065
  7. SALMON OIL [Concomitant]
     Route: 065
  8. VITAMIN C [Concomitant]
     Route: 065

REACTIONS (27)
  - AMNESIA [None]
  - AREFLEXIA [None]
  - CARPAL TUNNEL SYNDROME [None]
  - CHEST PAIN [None]
  - CONDITION AGGRAVATED [None]
  - CONFUSIONAL STATE [None]
  - CONSTIPATION [None]
  - DIZZINESS [None]
  - EPISTAXIS [None]
  - EXERCISE TOLERANCE DECREASED [None]
  - HYPOAESTHESIA [None]
  - INFLUENZA LIKE ILLNESS [None]
  - INSOMNIA [None]
  - JOINT SWELLING [None]
  - LIGAMENT DISORDER [None]
  - MUSCULAR WEAKNESS [None]
  - MYALGIA [None]
  - NASAL CONGESTION [None]
  - OCULAR ICTERUS [None]
  - OEDEMA [None]
  - OEDEMA PERIPHERAL [None]
  - OROPHARYNGEAL PAIN [None]
  - PARAESTHESIA [None]
  - RHINORRHOEA [None]
  - SCIATICA [None]
  - SENSORY LOSS [None]
  - URINE OUTPUT DECREASED [None]
